FAERS Safety Report 7519011-2 (Version None)
Quarter: 2011Q2

REPORT INFORMATION
  Report Type: 
  Country: None (occurrence: None)
  Receive Date: 20110602
  Receipt Date: 20110527
  Transmission Date: 20111010
  Serious: Yes (Other)
  Sender: FDA-Public Use
  Company Number: US-PFIZER INC-2011115548

PATIENT
  Sex: Female
  Weight: 76.19 kg

DRUGS (4)
  1. DILANTIN [Suspect]
     Dosage: 300MG
  2. DILANTIN [Suspect]
     Indication: CONVULSION
     Dosage: 400MG
     Route: 048
     Dates: start: 19850101, end: 19930101
  3. DILANTIN [Suspect]
     Dosage: 400MG
     Dates: start: 20010101
  4. VITAMIN D [Concomitant]
     Dosage: UNK, 1X/WEEK

REACTIONS (5)
  - SKIN CANCER [None]
  - MALIGNANT MELANOMA [None]
  - INCONTINENCE [None]
  - BASAL CELL CARCINOMA [None]
  - THYROID CANCER [None]
